FAERS Safety Report 7723461-9 (Version None)
Quarter: 2011Q3

REPORT INFORMATION
  Report Type: 
  Country: None (occurrence: None)
  Receive Date: 20110901
  Receipt Date: 20110826
  Transmission Date: 20111222
  Serious: Yes (Other)
  Sender: FDA-Public Use
  Company Number: US-PFIZER INC-2011200424

PATIENT
  Age: 84 Year
  Sex: Female

DRUGS (1)
  1. AMIODARONE HCL [Suspect]
     Dosage: 200 MG, UNK
     Dates: start: 20110101

REACTIONS (4)
  - THYROID DISORDER [None]
  - ASTHENIA [None]
  - HYPERHIDROSIS [None]
  - COORDINATION ABNORMAL [None]
